FAERS Safety Report 12946514 (Version 1)
Quarter: 2016Q4

REPORT INFORMATION
  Report Type: Report from Study
  Country: DE (occurrence: DE)
  Receive Date: 20161116
  Receipt Date: 20161116
  Transmission Date: 20170207
  Serious: Yes (Hospitalization)
  Sender: FDA-Public Use
  Company Number: PHHY2016DE153782

PATIENT
  Age: 60 Year
  Sex: Male
  Weight: 119 kg

DRUGS (1)
  1. COSENTYX [Suspect]
     Active Substance: SECUKINUMAB
     Indication: PSORIASIS
     Dosage: 300 MG, UNK
     Route: 058
     Dates: start: 20160112

REACTIONS (12)
  - General physical health deterioration [Recovered/Resolved]
  - Renal cyst [Unknown]
  - Urinary tract infection [Recovered/Resolved]
  - Chest discomfort [Recovered/Resolved]
  - Cough [Recovered/Resolved]
  - Hyperhidrosis [Recovered/Resolved]
  - Cholelithiasis [Unknown]
  - Headache [Recovered/Resolved]
  - Hepatic steatosis [Unknown]
  - Chest pain [Recovered/Resolved]
  - Klebsiella infection [Recovered/Resolved]
  - Fatigue [Recovered/Resolved]

NARRATIVE: CASE EVENT DATE: 20160925
